FAERS Safety Report 8166805-9 (Version None)
Quarter: 2012Q1

REPORT INFORMATION
  Report Type: 
  Country: None (occurrence: None)
  Receive Date: 20120227
  Receipt Date: 20120217
  Transmission Date: 20120608
  Serious: Yes (Other)
  Sender: FDA-Public Use
  Company Number: FR-ROCHE-1030079

PATIENT
  Sex: Male
  Weight: 84.7 kg

DRUGS (5)
  1. REFACTO [Concomitant]
     Indication: HAEMOPHILIA
     Dosage: FORM: SOLUTION
     Route: 058
     Dates: start: 20000101
  2. IRBESARTAN [Concomitant]
     Indication: HYPERTENSION
     Route: 048
     Dates: start: 20110119
  3. COPEGUS [Suspect]
     Indication: HEPATITIS C
     Dosage: LAST DOSE PRIOR TO SAE: 30/OCT/2011
     Route: 048
     Dates: start: 20110124
  4. BI 207127 [Suspect]
     Indication: HEPATITIS C
     Dosage: LAST DOSE PRIOR TO SAE: 30/OCT/2011
     Route: 048
     Dates: start: 20110124
  5. BI 201335 (HCV PROTEASE INHIBITOR) [Suspect]
     Indication: HEPATITIS C
     Dosage: LAST DOSE PRIOR TO SAE: 30/OCT/2011
     Route: 048
     Dates: start: 20110124

REACTIONS (1)
  - PHOTOSENSITIVITY REACTION [None]
